FAERS Safety Report 13941677 (Version 1)
Quarter: 2017Q3

REPORT INFORMATION
  Report Type: Spontaneous
  Country: US (occurrence: US)
  Receive Date: 20170906
  Receipt Date: 20170906
  Transmission Date: 20171127
  Serious: Yes (Other)
  Sender: FDA-Public Use
  Company Number: None

PATIENT
  Sex: Male
  Weight: 93.15 kg

DRUGS (4)
  1. TERBINAFINE HCL 250 MG TABLET GENERIC FOR LAMISIL [Suspect]
     Active Substance: TERBINAFINE HYDROCHLORIDE
     Indication: ONYCHOMYCOSIS
     Dosage: ?          QUANTITY:1 TABLET(S);?
     Route: 048
     Dates: start: 20170509, end: 20170801
  2. VITAMIN C [Concomitant]
     Active Substance: ASCORBIC ACID
  3. PROTANDIM [Concomitant]
     Active Substance: DIETARY SUPPLEMENT
  4. ZINC. [Concomitant]
     Active Substance: ZINC

REACTIONS (2)
  - Dysgeusia [None]
  - Ageusia [None]

NARRATIVE: CASE EVENT DATE: 20170723
